FAERS Safety Report 4771283-3 (Version None)
Quarter: 2005Q3

REPORT INFORMATION
  Report Type: 
  Country: None (occurrence: None)
  Receive Date: 20050915
  Receipt Date: 20050906
  Transmission Date: 20060218
  Serious: Yes (Other)
  Sender: FDA-Public Use
  Company Number: USA-2003-0005353

PATIENT
  Age: 50 Year
  Sex: Male

DRUGS (9)
  1. OXYCONTIN [Suspect]
     Indication: PAIN
     Dosage: 80 MG, QID
  2. DEXTROSTAT [Suspect]
     Dosage: 30 MG, QID
  3. DURAGESIC-100 [Suspect]
  4. DESOXYN [Suspect]
  5. DEMORAL [Suspect]
  6. PROMETHEGAN [Suspect]
  7. XANAX [Concomitant]
  8. NEURONTIN [Suspect]
  9. ALZAMO [Suspect]

REACTIONS (4)
  - AMNESIA [None]
  - LEGAL PROBLEM [None]
  - MURDER [None]
  - ROAD TRAFFIC ACCIDENT [None]
